FAERS Safety Report 8638421 (Version 2)
Quarter: 2012Q4

REPORT INFORMATION
  Report Type: 
  Country: FR (occurrence: FR)
  Receive Date: 20120627
  Receipt Date: 20120907
  Transmission Date: 20130627
  Serious: Yes (Other)
  Sender: FDA-Public Use
  Company Number: FR-GLAXOSMITHKLINE-B0810540A

PATIENT
  Age: 59 None
  Sex: Female

DRUGS (5)
  1. ZELITREX [Suspect]
     Indication: ORAL HERPES
     Dosage: 1000MG Three times per day
     Route: 048
     Dates: start: 201206, end: 20120612
  2. PIASCLEDINE [Concomitant]
     Indication: OSTEOARTHRITIS
  3. LAROXYL [Concomitant]
     Indication: DEPRESSION
  4. ATARAX [Concomitant]
     Indication: DEPRESSION
  5. LEXOMIL [Concomitant]
     Indication: DEPRESSION

REACTIONS (5)
  - Acute generalised exanthematous pustulosis [Recovered/Resolved]
  - Rash vesicular [Recovered/Resolved]
  - Rash papular [Recovered/Resolved]
  - Rash erythematous [Recovered/Resolved]
  - Skin exfoliation [Recovered/Resolved]
